FAERS Safety Report 9054410 (Version 1)
Quarter: 2013Q1

REPORT INFORMATION
  Report Type: Spontaneous
  Country: US (occurrence: US)
  Receive Date: 20130208
  Receipt Date: 20130208
  Transmission Date: 20140127
  Serious: No
  Sender: FDA-Public Use
  Company Number: US-GLAXOSMITHKLINE-A0693987A

PATIENT
  Sex: Male

DRUGS (1)
  1. PAROXETINE [Suspect]
     Indication: MAJOR DEPRESSION
     Route: 065

REACTIONS (2)
  - Therapeutic response decreased [Unknown]
  - Product substitution issue [Unknown]
